FAERS Safety Report 9312614 (Version 3)
Quarter: 2013Q3

REPORT INFORMATION
  Report Type: Spontaneous
  Country: IT (occurrence: IT)
  Receive Date: 20130528
  Receipt Date: 20130717
  Transmission Date: 20140515
  Serious: Yes (Hospitalization)
  Sender: FDA-Public Use
  Company Number: IT-BRISTOL-MYERS SQUIBB COMPANY-18909663

PATIENT
  Age: 54 Year
  Sex: Male
  Weight: 65 kg

DRUGS (5)
  1. REYATAZ CAPS 300 MG [Suspect]
     Indication: HIV INFECTION
     Route: 048
     Dates: start: 20130404, end: 20130504
  2. NORVIR [Interacting]
     Indication: HIV INFECTION
     Route: 048
     Dates: start: 20130404, end: 20130504
  3. TRUVADA [Interacting]
     Indication: HIV INFECTION
     Dosage: TRUVADA 200/245 MG TAB
     Route: 048
     Dates: start: 20130404, end: 20130504
  4. OLPRESS [Concomitant]
     Indication: HYPERTENSION
     Dosage: OLPREZIDE ^20/25 MG TAB
     Route: 048
     Dates: start: 20030101, end: 20130504
  5. BACTRIM [Concomitant]
     Indication: ANTIBIOTIC PROPHYLAXIS
     Dosage: 160+800 MG TABLETS
     Route: 048
     Dates: start: 20130404, end: 20130504

REACTIONS (2)
  - Renal failure acute [Recovered/Resolved]
  - Drug interaction [Unknown]
